FAERS Safety Report 16507002 (Version 1)
Quarter: 2019Q2

REPORT INFORMATION
  Report Type: Spontaneous
  Country: US (occurrence: US)
  Receive Date: 20190520
  Receipt Date: 20190520
  Transmission Date: 20190711
  Serious: Yes (Other)
  Sender: FDA-Public Use
  Company Number: None

PATIENT
  Age: 66 Year
  Sex: Female
  Weight: 65.77 kg

DRUGS (9)
  1. LEVOFLOXACIN. [Suspect]
     Active Substance: LEVOFLOXACIN
     Indication: PNEUMONIA
     Dosage: ?          QUANTITY:1 DF DOSAGE FORM;?
     Route: 048
     Dates: start: 20190301, end: 20190309
  2. LEVAQUIN [Suspect]
     Active Substance: LEVOFLOXACIN
  3. FISH OILS [Concomitant]
  4. VITAMIN C [Concomitant]
     Active Substance: ASCORBIC ACID
  5. MULTIPLE VITAMIN [Concomitant]
     Active Substance: VITAMINS
  6. COQ10 [Concomitant]
     Active Substance: UBIDECARENONE
  7. PROBIOTIC [Concomitant]
     Active Substance: PROBIOTICS NOS
  8. NUX VOMICA HOMEOPATHIC [Concomitant]
  9. VIT D [Concomitant]
     Active Substance: VITAMIN D NOS

REACTIONS (4)
  - Alopecia [None]
  - Dizziness [None]
  - Depressed level of consciousness [None]
  - Allergy to chemicals [None]

NARRATIVE: CASE EVENT DATE: 20190302
